FAERS Safety Report 9128119 (Version 1)
Quarter: 2013Q1

REPORT INFORMATION
  Report Type: Spontaneous
  Country: US (occurrence: US)
  Receive Date: 20130125
  Receipt Date: 20130125
  Transmission Date: 20140127
  Serious: Yes (Death, Other)
  Sender: FDA-Public Use
  Company Number: PHHY2013US006674

PATIENT
  Age: 33 Year
  Sex: Female

DRUGS (7)
  1. METFORMIN [Suspect]
  2. GLIMEPIRIDE [Suspect]
  3. CITALOPRAM [Suspect]
  4. LISINOPRIL+HYDROCHLOROTHIAZIDE [Suspect]
  5. TRAZODONE [Suspect]
  6. PRAVASTATIN [Suspect]
  7. INSULIN [Suspect]

REACTIONS (2)
  - Completed suicide [Fatal]
  - Drug level increased [Unknown]
